FAERS Safety Report 12154029 (Version 1)
Quarter: 2016Q1

REPORT INFORMATION
  Report Type: Spontaneous
  Country: US (occurrence: None)
  Receive Date: 20160304
  Receipt Date: 20160304
  Transmission Date: 20160526
  Serious: Yes (Other)
  Sender: FDA-Public Use
  Company Number: None

PATIENT
  Age: 45 Year
  Sex: Female

DRUGS (1)
  1. TACROLIMUS 1MG SANDOZ [Suspect]
     Active Substance: TACROLIMUS

REACTIONS (1)
  - Dry skin [None]

NARRATIVE: CASE EVENT DATE: 20160301
